FAERS Safety Report 18506424 (Version 4)
Quarter: 2021Q2

REPORT INFORMATION
  Report Type: Spontaneous
  Country: US (occurrence: US)
  Receive Date: 20201116
  Receipt Date: 20210406
  Transmission Date: 20210717
  Serious: Yes (Other)
  Sender: FDA-Public Use
  Company Number: US-PFIZER INC-2020278154

PATIENT
  Age: 69 Year
  Sex: Female
  Weight: 69.85 kg

DRUGS (2)
  1. LYRICA [Suspect]
     Active Substance: PREGABALIN
     Indication: CERVICAL RADICULOPATHY
     Dosage: 200 MG, 2X/DAY
     Route: 048
  2. LYRICA [Suspect]
     Active Substance: PREGABALIN
     Indication: FIBROMYALGIA
     Dosage: 200 MG, 2X/DAY

REACTIONS (6)
  - Blindness [Unknown]
  - Alopecia [Unknown]
  - Pain [Unknown]
  - Rhinitis allergic [Unknown]
  - Oropharyngeal discomfort [Unknown]
  - Memory impairment [Unknown]
